FAERS Safety Report 5074307-1 (Version None)
Quarter: 2006Q3

REPORT INFORMATION
  Report Type: 
  Country: None (occurrence: None)
  Receive Date: 20060808
  Receipt Date: 20050428
  Transmission Date: 20061208
  Serious: No
  Sender: FDA-Public Use
  Company Number: US-AMGEN-KDL130372

PATIENT
  Sex: Male

DRUGS (2)
  1. PROCRIT [Suspect]
     Indication: ANAEMIA
     Dates: start: 20050126, end: 20050224
  2. RIBAVIRIN [Concomitant]

REACTIONS (6)
  - FACE OEDEMA [None]
  - HYPERSENSITIVITY [None]
  - PRURITUS [None]
  - RASH ERYTHEMATOUS [None]
  - SKIN DEPIGMENTATION [None]
  - SKIN EXFOLIATION [None]
